FAERS Safety Report 4412574-5 (Version None)
Quarter: 2004Q2

REPORT INFORMATION
  Report Type: 
  Country: None (occurrence: None)
  Receive Date: 20040630
  Receipt Date: 20040403
  Transmission Date: 20050107
  Serious: No
  Sender: FDA-Public Use
  Company Number: 04P-163-0252639-00

PATIENT
  Age: 58 Year
  Sex: Female
  Weight: 48.5349 kg

DRUGS (10)
  1. HUMIRA [Suspect]
     Indication: RHEUMATOID ARTHRITIS
     Dosage: 40 MG, 1 IN 2 WK, SUBCUTANEOUS (SEE IMAGE)
     Route: 058
     Dates: start: 20040307, end: 20040403
  2. HUMIRA [Suspect]
     Indication: RHEUMATOID ARTHRITIS
     Dosage: 40 MG, 1 IN 2 WK, SUBCUTANEOUS (SEE IMAGE)
     Route: 058
     Dates: start: 20030404
  3. PREDNISONE [Concomitant]
  4. METHOTREXATE [Concomitant]
  5. SULFASALAZINE [Concomitant]
  6. HYDROXYCHLOROQUINE PHOSPHATE [Concomitant]
  7. ISONIAZID [Concomitant]
  8. METOPROLOL SUCCINATE [Concomitant]
  9. RISEDRONATE SODIUM [Concomitant]
  10. CELECOXIB [Concomitant]

REACTIONS (3)
  - INJECTION SITE BURNING [None]
  - INJECTION SITE ERYTHEMA [None]
  - RASH [None]
